FAERS Safety Report 9788678 (Version 2)
Quarter: 2014Q1

REPORT INFORMATION
  Report Type: Spontaneous
  Country: GB (occurrence: GB)
  Receive Date: 20131230
  Receipt Date: 20140331
  Transmission Date: 20141002
  Serious: Yes (Death, Other)
  Sender: FDA-Public Use
  Company Number: GB-TEVA-452963ISR

PATIENT
  Age: 45 Year
  Sex: Female

DRUGS (24)
  1. OXICONTIN [Suspect]
     Indication: PAIN
     Dosage: 30 MILLIGRAM DAILY;
     Route: 048
  2. CITALOPRAM [Interacting]
     Indication: PRODUCT USED FOR UNKNOWN INDICATION
     Route: 048
  3. DIAZEPAM [Interacting]
     Indication: PRODUCT USED FOR UNKNOWN INDICATION
     Route: 065
  4. GABAPENTIN [Interacting]
     Indication: PRODUCT USED FOR UNKNOWN INDICATION
     Dosage: 400 MILLIGRAM DAILY;
     Route: 065
  5. XARELTO [Concomitant]
  6. ANTIBIOTICS [Concomitant]
  7. AZATHIOPRINE [Concomitant]
     Dosage: 75 (50+25)MG, DAILY
  8. CALCICHEW D3 [Concomitant]
     Dosage: 2 DOSAGE FORMS DAILY;
  9. CHLORPHENAMINE [Concomitant]
     Dosage: 16 MILLIGRAM DAILY;
  10. CLENIL MODULITE [Concomitant]
  11. COLCHICINE [Concomitant]
     Dosage: 1.5 TABLETS DAILY
  12. NUTRITIONAL SUPPLEMENT [Concomitant]
     Dosage: DAILY
  13. LOPERAMIDE [Concomitant]
     Dosage: 2 MILLIGRAM DAILY; DAILY
  14. OMEPRAZOLE [Concomitant]
     Dosage: DAILY
  15. ONDANSETRON [Concomitant]
     Dosage: 24 MILLIGRAM DAILY;
  16. OPTIVE [Concomitant]
     Dosage: 0.5 %, 1 DROP DAILY
  17. OXYBUTYNIN [Concomitant]
  18. PARACETAMOL [Concomitant]
     Dosage: 2 TABLETS UP TO 4 TIMES DAILY
  19. PREDNISONE [Concomitant]
     Dosage: 10 MILLIGRAM DAILY;
  20. QUININE SULFATE [Concomitant]
     Dosage: NOCTE
  21. REGURIN [Concomitant]
     Dosage: DAILY
  22. VENTOLIN [Concomitant]
     Dosage: 100 MCG, PRN
  23. XARELTO [Concomitant]
     Dosage: 40 MILLIGRAM DAILY;
  24. ZOPICLONE [Concomitant]
     Dosage: NOCTE

REACTIONS (2)
  - Respiratory failure [Fatal]
  - Drug interaction [Unknown]
